FAERS Safety Report 18065362 (Version 1)
Quarter: 2020Q3

REPORT INFORMATION
  Report Type: Spontaneous
  Country: US (occurrence: US)
  Receive Date: 20200724
  Receipt Date: 20200724
  Transmission Date: 20201103
  Serious: Yes (Hospitalization, Other)
  Sender: FDA-Public Use
  Company Number: US-ACCORD-189203

PATIENT
  Age: 53 Year
  Sex: Female

DRUGS (2)
  1. CLOZAPINE. [Suspect]
     Active Substance: CLOZAPINE
     Indication: SCHIZOPHRENIA
     Dosage: 250 MG QHS
  2. FLUPHENAZINE [Concomitant]
     Active Substance: FLUPHENAZINE
     Indication: SCHIZOPHRENIA
     Dosage: 5 MG IN THE MORNING AND 10 MG QHS

REACTIONS (4)
  - Pyrexia [Unknown]
  - Delirium [Recovered/Resolved]
  - Drug level increased [Recovered/Resolved]
  - Vomiting [Unknown]
